FAERS Safety Report 9030823 (Version 2)
Quarter: 2013Q1

REPORT INFORMATION
  Report Type: Spontaneous
  Country: GR (occurrence: GR)
  Receive Date: 20130123
  Receipt Date: 20130212
  Transmission Date: 20140127
  Serious: Yes (Other)
  Sender: FDA-Public Use
  Company Number: GR-JNJFOC-20120910627

PATIENT
  Sex: Male

DRUGS (6)
  1. PREZISTA [Suspect]
     Indication: HIV INFECTION
     Route: 048
     Dates: start: 20121025
  2. PREZISTA [Suspect]
     Indication: HIV INFECTION
     Route: 048
     Dates: start: 201205
  3. TRUVADA [Suspect]
     Indication: HIV INFECTION
     Route: 065
     Dates: start: 201205
  4. TRUVADA [Suspect]
     Indication: HIV INFECTION
     Route: 065
     Dates: start: 20121025
  5. RITONAVIR [Suspect]
     Indication: HIV INFECTION
     Route: 048
     Dates: start: 20121025
  6. RITONAVIR [Suspect]
     Indication: HIV INFECTION
     Route: 048

REACTIONS (3)
  - Rhabdomyolysis [Not Recovered/Not Resolved]
  - Inflammation [Unknown]
  - Off label use [Unknown]
